FAERS Safety Report 13190531 (Version 1)
Quarter: 2017Q1

REPORT INFORMATION
  Report Type: Spontaneous
  Country: US (occurrence: US)
  Receive Date: 20170206
  Receipt Date: 20170206
  Transmission Date: 20170428
  Serious: Yes (Other)
  Sender: FDA-Public Use
  Company Number: US-009507513-1702USA001751

PATIENT
  Sex: Female

DRUGS (1)
  1. FOSAMAX [Suspect]
     Active Substance: ALENDRONATE SODIUM
     Indication: OSTEOPENIA
     Dosage: 70 MG / ^1 TABLET ONCE A WEEK^
     Route: 048
     Dates: start: 201312, end: 201604

REACTIONS (3)
  - Osteonecrosis of jaw [Not Recovered/Not Resolved]
  - Tooth extraction [Not Recovered/Not Resolved]
  - Oral surgery [Not Recovered/Not Resolved]
